FAERS Safety Report 24200766 (Version 3)
Quarter: 2024Q4

REPORT INFORMATION
  Report Type: Spontaneous
  Country: JP (occurrence: JP)
  Receive Date: 20240812
  Receipt Date: 20241030
  Transmission Date: 20250115
  Serious: Yes (Hospitalization)
  Sender: MERCK
  Company Number: JP-MSD-M2024-29528

PATIENT
  Age: 62 Year

DRUGS (2)
  1. CANCIDAS [Suspect]
     Active Substance: CASPOFUNGIN ACETATE
     Indication: Neutropenia
     Dosage: UNK
     Route: 041
  2. CANCIDAS [Suspect]
     Active Substance: CASPOFUNGIN ACETATE
     Indication: Fungal infection

REACTIONS (2)
  - Oral candidiasis [Recovered/Resolved]
  - Therapeutic product effect incomplete [Unknown]
